FAERS Safety Report 7867858-5 (Version None)
Quarter: 2011Q4

REPORT INFORMATION
  Report Type: 
  Country: None (occurrence: None)
  Receive Date: 20111028
  Receipt Date: 20111020
  Transmission Date: 20120403
  Serious: Yes (Hospitalization, Other)
  Sender: FDA-Public Use
  Company Number: CA-CELGENEUS-028-CCAZA-11102798

PATIENT
  Sex: Male
  Weight: 104.2 kg

DRUGS (7)
  1. AZACITIDINE [Suspect]
     Dosage: 75 MILLIGRAM/SQ. METER
     Route: 058
     Dates: start: 20111017
  2. METOPROLOL TARTRATE [Concomitant]
     Indication: ATRIAL FIBRILLATION
     Dosage: 12.5 MILLIGRAM
     Route: 048
  3. FLOMAX [Concomitant]
     Route: 065
  4. AZACITIDINE [Suspect]
     Dosage: 75 MILLIGRAM/SQ. METER
     Route: 058
     Dates: start: 20110906, end: 20110912
  5. TINZAPARIN [Concomitant]
     Route: 065
     Dates: end: 20111017
  6. ALLOPURINOL [Concomitant]
     Route: 065
  7. TYLENOL-500 [Concomitant]
     Route: 065

REACTIONS (3)
  - URINARY TRACT INFECTION [None]
  - PAIN [None]
  - HAEMATOMA [None]
